FAERS Safety Report 22606947 (Version 3)
Quarter: 2023Q4

REPORT INFORMATION
  Report Type: Report from Study
  Country: US (occurrence: US)
  Receive Date: 20230615
  Receipt Date: 20231005
  Transmission Date: 20240109
  Serious: Yes (Hospitalization)
  Sender: FDA-Public Use
  Company Number: US-GENMAB-2023-00908

PATIENT
  Age: 68 Year
  Sex: Male
  Weight: 74.8 kg

DRUGS (25)
  1. EPCORITAMAB [Suspect]
     Active Substance: EPCORITAMAB
     Indication: Diffuse large B-cell lymphoma stage IV
     Dosage: C1D1
     Route: 058
     Dates: start: 20230313, end: 20230313
  2. EPCORITAMAB [Suspect]
     Active Substance: EPCORITAMAB
     Dosage: C1D8
     Route: 058
     Dates: start: 20230320, end: 20230320
  3. EPCORITAMAB [Suspect]
     Active Substance: EPCORITAMAB
     Dosage: C1D15 - C2D1
     Route: 058
     Dates: start: 20230327, end: 20230414
  4. CYCLOPHOSPHAMIDE\DOXORUBICIN\PREDNISONE\RITUXIMAB\VINCRISTINE [Suspect]
     Active Substance: CYCLOPHOSPHAMIDE\DOXORUBICIN\PREDNISONE\RITUXIMAB\VINCRISTINE
     Dosage: C1D1 (RITUXIMAB AT 700 MG, CYCLOPHOSPHAMIDE 1430 MG, DOXYCYCLINE HYCLATE 100 MG, VINCRISTINE 2 MG AN
     Dates: start: 20230427, end: 20230427
  5. DIPHENHYDRAMINE [Concomitant]
     Active Substance: DIPHENHYDRAMINE
     Indication: Premedication
     Dosage: 50 MILLIGRAM, SINGLE
     Route: 048
     Dates: start: 20230407, end: 20230407
  6. ACETAMINOPHEN [Concomitant]
     Active Substance: ACETAMINOPHEN
     Indication: Premedication
     Dosage: 650 MILLIGRAM, SINGLE
     Route: 048
     Dates: start: 20230414, end: 20230414
  7. PREDNISONE [Concomitant]
     Active Substance: PREDNISONE
     Indication: Prophylaxis
     Dosage: 100 MILLIGRAM, QD
     Route: 048
     Dates: start: 20230408, end: 20230410
  8. PREDNISONE [Concomitant]
     Active Substance: PREDNISONE
     Dosage: 20 MILLIGRAM, SINGLE
     Route: 048
     Dates: start: 20230414, end: 20230414
  9. ACETAMINOPHEN [Concomitant]
     Active Substance: ACETAMINOPHEN
     Indication: Headache
     Dosage: 650 MILLIGRAM, PRN
     Route: 048
     Dates: start: 20170215
  10. ACYCLOVIR [Concomitant]
     Active Substance: ACYCLOVIR
     Indication: Prophylaxis
     Dosage: 400 MILLIGRAM, BID
     Route: 048
     Dates: start: 20230313
  11. ALLOPURINOL [Concomitant]
     Active Substance: ALLOPURINOL
     Indication: Prophylaxis
     Dosage: 300 MILLIGRAM, QD
     Route: 048
     Dates: start: 20230310
  12. DOXAZOSIN [Concomitant]
     Active Substance: DOXAZOSIN MESYLATE
     Dosage: 1 MILLIGRAM, BID
     Route: 048
     Dates: start: 201403
  13. FINASTERIDE [Concomitant]
     Active Substance: FINASTERIDE
     Dosage: 5 MILLIGRAM, QD
     Route: 048
     Dates: start: 201403
  14. LORAZEPAM [Concomitant]
     Active Substance: LORAZEPAM
     Dosage: 1 MILLIGRAM, PRN
     Route: 048
     Dates: start: 20230313
  15. MELATONIN [Concomitant]
     Active Substance: MELATONIN
     Dosage: DOSE : 1 TABLET
     Route: 048
     Dates: start: 202101
  16. ONDANSETRON [Concomitant]
     Active Substance: ONDANSETRON
     Indication: Retching
     Dosage: 8 MILLIGRAM, PRN
     Route: 048
     Dates: start: 202001
  17. OXYCODONE [Concomitant]
     Active Substance: OXYCODONE
     Dosage: 5 MILLIGRAM, PRN
     Route: 048
     Dates: start: 20230127
  18. DAPTOMYCIN [Concomitant]
     Active Substance: DAPTOMYCIN
     Indication: Catheter site erythema
     Dosage: 600 MILLIGRAM, PRN
     Route: 042
     Dates: start: 20230421
  19. IBUPROFEN [Concomitant]
     Active Substance: IBUPROFEN
     Indication: Non-cardiac chest pain
     Dosage: 200 MILLIGRAM, PRN
     Route: 048
     Dates: start: 20230412
  20. CARBIDOPA LEVODOPA [Concomitant]
     Active Substance: CARBIDOPA\LEVODOPA
     Dosage: 100 MILLIGRAM, QD
     Route: 048
     Dates: start: 20190207
  21. SULFAMETHOXAZOLE\TRIMETHOPRIM [Concomitant]
     Active Substance: SULFAMETHOXAZOLE\TRIMETHOPRIM
     Indication: Catheter site erythema
     Dosage: 1 TABLET
     Route: 048
     Dates: start: 20230417, end: 20230426
  22. HYDROXYZINE [Concomitant]
     Active Substance: HYDROXYZINE HYDROCHLORIDE
     Dosage: 25 MILLIGRAM, PRN
     Route: 048
     Dates: start: 20230518, end: 20230518
  23. ENOXAPARIN [Concomitant]
     Active Substance: ENOXAPARIN
     Indication: Prophylaxis
     Dosage: 40 MILLIGRAM, QD
     Route: 058
     Dates: start: 20230517, end: 20230518
  24. LOPERAMIDE [Concomitant]
     Active Substance: LOPERAMIDE
     Indication: Diarrhoea
     Dosage: DOSE : 1 DOSE
     Route: 048
     Dates: start: 20230401
  25. DOXYCYCLINE HYCLATE [Concomitant]
     Active Substance: DOXYCYCLINE HYCLATE
     Indication: Catheter site erythema
     Dosage: 100 MILLIGRAM, BID
     Route: 048
     Dates: start: 20230417, end: 20230424

REACTIONS (1)
  - Pneumocystis jirovecii pneumonia [Recovered/Resolved]

NARRATIVE: CASE EVENT DATE: 20230508
